FAERS Safety Report 22315962 (Version 1)
Quarter: 2023Q2

REPORT INFORMATION
  Report Type: Spontaneous
  Country: US (occurrence: US)
  Receive Date: 20230512
  Receipt Date: 20230512
  Transmission Date: 20230722
  Serious: No
  Sender: FDA-Public Use
  Company Number: US-BAUSCH-BL-2023-007138

PATIENT
  Age: 87 Year
  Sex: Male

DRUGS (1)
  1. JUBLIA [Suspect]
     Active Substance: EFINACONAZOLE
     Indication: Onychomycosis
     Dosage: USING JUBLIA FOR 5-6 WEEKS, APPLIES THE JUBLIA TO 1 BIG TOE
     Route: 061
     Dates: start: 2023

REACTIONS (1)
  - Onycholysis [Unknown]

NARRATIVE: CASE EVENT DATE: 20230101
